FAERS Safety Report 6085452-6 (Version None)
Quarter: 2009Q1

REPORT INFORMATION
  Report Type: 
  Country: None (occurrence: None)
  Receive Date: 20090220
  Receipt Date: 20090211
  Transmission Date: 20090719
  Serious: Yes (Hospitalization)
  Sender: FDA-Public Use
  Company Number: ES-AVENTIS-200910744EU

PATIENT
  Age: 69 Year
  Sex: Female

DRUGS (6)
  1. SEGURIL                            /00032601/ [Suspect]
     Route: 048
     Dates: start: 20071201
  2. ALDACTONE [Suspect]
     Route: 048
     Dates: end: 20081008
  3. OMEPRAZOLE [Concomitant]
     Route: 048
  4. DIGOXIN [Concomitant]
     Indication: ATRIAL FIBRILLATION
     Dosage: DOSE: UNK
     Route: 048
  5. PHENTANYL [Concomitant]
     Dosage: DOSE: UNK
     Route: 061
  6. NOVOLOG [Concomitant]
     Route: 058

REACTIONS (3)
  - DRUG INTERACTION [None]
  - HYPERKALAEMIA [None]
  - HYPONATRAEMIA [None]
